FAERS Safety Report 6465533-5 (Version None)
Quarter: 2009Q4

REPORT INFORMATION
  Report Type: 
  Country: None (occurrence: None)
  Receive Date: 20091201
  Receipt Date: 20081214
  Transmission Date: 20100525
  Serious: No
  Sender: FDA-Public Use
  Company Number: US-AMGEN-KDL313503

PATIENT
  Sex: Female
  Weight: 87.6 kg

DRUGS (10)
  1. ENBREL [Suspect]
     Indication: RHEUMATOID ARTHRITIS
     Route: 058
     Dates: start: 20040513, end: 20081013
  2. NORCO [Concomitant]
  3. FOSAMAX [Concomitant]
  4. ZOCOR [Concomitant]
  5. NAPROSYN [Concomitant]
  6. EFFEXOR [Concomitant]
  7. VITAMIN D [Concomitant]
  8. CALCIUM [Concomitant]
  9. VITAMIN B-12 [Concomitant]
  10. TYLENOL (CAPLET) [Concomitant]

REACTIONS (3)
  - LIVER FUNCTION TEST ABNORMAL [None]
  - MUSCULAR WEAKNESS [None]
  - STAPHYLOCOCCAL SKIN INFECTION [None]
